FAERS Safety Report 7328734-X (Version None)
Quarter: 2011Q1

REPORT INFORMATION
  Report Type: 
  Country: None (occurrence: None)
  Receive Date: 20110303
  Receipt Date: 20110222
  Transmission Date: 20110831
  Serious: Yes (Other)
  Sender: FDA-Public Use
  Company Number: JP-ROCHE-726941

PATIENT
  Sex: Female
  Weight: 34 kg

DRUGS (21)
  1. ACTEMRA [Suspect]
     Route: 041
     Dates: start: 20100120, end: 20100120
  2. VOLTAREN [Suspect]
     Indication: RHEUMATOID ARTHRITIS
     Dosage: DOSE FORM: SUSTAINED RELEASE CAPSULE
     Route: 048
     Dates: start: 20090706, end: 20100907
  3. LIPITOR [Concomitant]
     Route: 048
     Dates: start: 20080223
  4. ALOSITOL [Concomitant]
     Route: 048
     Dates: start: 20080505
  5. ACTEMRA [Suspect]
     Route: 041
     Dates: start: 20091224, end: 20091224
  6. OMEPRAL [Suspect]
     Indication: PROPHYLAXIS
     Route: 048
     Dates: start: 20070406
  7. CYTOTEC [Concomitant]
     Route: 048
     Dates: start: 20080520, end: 20100907
  8. ACTEMRA [Suspect]
     Route: 041
     Dates: start: 20090930, end: 20090930
  9. ACTONEL [Concomitant]
     Route: 048
  10. ACTEMRA [Suspect]
     Route: 041
     Dates: start: 20100216, end: 20100831
  11. PREDNISOLONE [Suspect]
     Indication: RHEUMATOID ARTHRITIS
     Dosage: DOSE FORM: PERORAL AGENT
     Route: 048
     Dates: start: 20070406
  12. BAKTAR [Concomitant]
     Route: 048
  13. ACTEMRA [Suspect]
     Route: 041
     Dates: start: 20091028, end: 20091028
  14. BASEN [Concomitant]
     Route: 048
     Dates: start: 20070407, end: 20100907
  15. ACTEMRA [Suspect]
     Indication: RHEUMATOID ARTHRITIS
     Route: 041
     Dates: start: 20090826, end: 20090826
  16. ACTEMRA [Suspect]
     Route: 041
     Dates: start: 20091125, end: 20091125
  17. RHEUMATREX [Suspect]
     Indication: RHEUMATOID ARTHRITIS
     Route: 048
     Dates: start: 20100216
  18. METHYCOBAL [Concomitant]
     Route: 048
     Dates: start: 20081022
  19. POLARAMINE [Concomitant]
     Route: 048
     Dates: start: 20100608, end: 20100907
  20. VOLTAREN [Suspect]
     Dosage: VOLTAREN:LOTION(DICLOFENAC SODIUM)
     Route: 062
     Dates: start: 20081204, end: 20100907
  21. OLMETEC [Concomitant]
     Route: 048
     Dates: start: 20080226, end: 20100907

REACTIONS (2)
  - LARGE INTESTINAL ULCER [None]
  - LARGE INTESTINE PERFORATION [None]
